FAERS Safety Report 8880192 (Version 2)
Quarter: 2013Q1

REPORT INFORMATION
  Report Type: Spontaneous
  Country: CA (occurrence: CA)
  Receive Date: 20121031
  Receipt Date: 20130111
  Transmission Date: 20140127
  Serious: Yes (Death, Other)
  Sender: FDA-Public Use
  Company Number: CA-ASTRAZENECA-2012SE82228

PATIENT
  Age: 33 Year
  Sex: Male
  Weight: 83 kg

DRUGS (2)
  1. SEROQUEL [Suspect]
     Indication: SCHIZOPHRENIA
     Dosage: DAILY
     Route: 048
  2. FLUPHENAZINE [Suspect]
     Indication: SCHIZOPHRENIA
     Route: 030

REACTIONS (5)
  - Allergic myocarditis [Fatal]
  - Feeling hot [Unknown]
  - Headache [Unknown]
  - Limb discomfort [Unknown]
  - Malaise [Unknown]
